FAERS Safety Report 6477925-9 (Version None)
Quarter: 2009Q4

REPORT INFORMATION
  Report Type: 
  Country: None (occurrence: None)
  Receive Date: 20091207
  Receipt Date: 20091201
  Transmission Date: 20100525
  Serious: Yes (Hospitalization, Congenital Anomaly)
  Sender: FDA-Public Use
  Company Number: A0751150A

PATIENT
  Sex: Female
  Weight: 3.2 kg

DRUGS (4)
  1. PAXIL [Suspect]
     Indication: BIPOLAR DISORDER
     Dosage: 10MG PER DAY
     Dates: start: 20010101, end: 20060101
  2. PAROXETINE HYDROCHLORIDE [Suspect]
     Indication: DEPRESSION
  3. VITAMIN TAB [Concomitant]
  4. RHOGAM [Concomitant]

REACTIONS (14)
  - ATRIAL SEPTAL DEFECT [None]
  - ATRIAL THROMBOSIS [None]
  - BODY TEMPERATURE INCREASED [None]
  - CARDIOMEGALY [None]
  - DRUG EXPOSURE DURING PREGNANCY [None]
  - FOETAL HEART RATE DECELERATION [None]
  - HYPOTENSION [None]
  - MATERNAL DRUGS AFFECTING FOETUS [None]
  - NODAL ARRHYTHMIA [None]
  - PLEURAL EFFUSION [None]
  - PNEUMONIA [None]
  - RESPIRATORY TRACT INFECTION [None]
  - SUPRAVENTRICULAR TACHYCARDIA [None]
  - UMBILICAL CORD AROUND NECK [None]
